FAERS Safety Report 12497351 (Version 2)
Quarter: 2017Q1

REPORT INFORMATION
  Report Type: Spontaneous
  Country: US (occurrence: US)
  Receive Date: 20160624
  Receipt Date: 20170314
  Transmission Date: 20170428
  Serious: Yes (Hospitalization)
  Sender: FDA-Public Use
  Company Number: US-MYLANLABS-2016M1026192

PATIENT

DRUGS (2)
  1. MESALAZINE [Suspect]
     Active Substance: MESALAMINE
     Indication: COLITIS ULCERATIVE
     Dosage: 4.8 G/DAY
     Route: 048
  2. MESALAZINE [Suspect]
     Active Substance: MESALAMINE
     Dosage: 4 G/DAY
     Route: 054

REACTIONS (3)
  - Acute generalised exanthematous pustulosis [Recovered/Resolved]
  - Renal failure [Recovered/Resolved]
  - Liver function test increased [Recovering/Resolving]
